FAERS Safety Report 9408473 (Version 1)
Quarter: 2013Q3

REPORT INFORMATION
  Report Type: Spontaneous
  Country: US (occurrence: None)
  Receive Date: 20130716
  Receipt Date: 20130716
  Transmission Date: 20140515
  Serious: Yes (Hospitalization)
  Sender: FDA-Public Use
  Company Number: 2013US001825

PATIENT
  Age: 86 Year
  Sex: Female
  Weight: 61 kg

DRUGS (1)
  1. ICLUSIG (PONATINIB) TABLET, 45 MG [Suspect]
     Indication: CHRONIC MYELOID LEUKAEMIA
     Route: 048
     Dates: start: 20130505

REACTIONS (3)
  - Fall [None]
  - Cerebral haemorrhage [None]
  - Asthenia [None]
